FAERS Safety Report 4472932-X (Version None)
Quarter: 2004Q4

REPORT INFORMATION
  Report Type: 
  Country: None (occurrence: None)
  Receive Date: 20041013
  Receipt Date: 20041005
  Transmission Date: 20050328
  Serious: Yes (Hospitalization)
  Sender: FDA-Public Use
  Company Number: CA-MERCK-0410CAN00149

PATIENT
  Age: 74 Year
  Sex: Male

DRUGS (1)
  1. VIOXX [Suspect]
     Route: 048

REACTIONS (5)
  - CORONARY REVASCULARISATION [None]
  - DIZZINESS [None]
  - MYOCARDIAL INFARCTION [None]
  - PALPITATIONS [None]
  - VOMITING [None]
